FAERS Safety Report 21020655 (Version 1)
Quarter: 2022Q2

REPORT INFORMATION
  Report Type: Report from Study
  Country: TW (occurrence: TW)
  Receive Date: 20220629
  Receipt Date: 20220629
  Transmission Date: 20220720
  Serious: Yes (Hospitalization)
  Sender: FDA-Public Use
  Company Number: TW-ABBVIE-22K-153-4446387-00

PATIENT
  Age: 57 Year
  Sex: Male
  Weight: 80 kg

DRUGS (1)
  1. SKYRIZI [Suspect]
     Active Substance: RISANKIZUMAB-RZAA
     Indication: Psoriasis
     Dosage: WEEK 0, 4, AND EVERY 12 WEEKS THEREAFTER
     Route: 058
     Dates: start: 20220304

REACTIONS (2)
  - Goitre [Recovered/Resolved]
  - Haemorrhagic cyst [Recovered/Resolved]

NARRATIVE: CASE EVENT DATE: 20220411
